FAERS Safety Report 17418818 (Version 1)
Quarter: 2020Q1

REPORT INFORMATION
  Report Type: Other
  Country: CA (occurrence: CA)
  Receive Date: 20200214
  Receipt Date: 20200214
  Transmission Date: 20200409
  Serious: Yes (Hospitalization, Other)
  Sender: FDA-Public Use
  Company Number: CA-APOTEX-2020AP007574

PATIENT
  Age: 61 Year
  Sex: Male

DRUGS (4)
  1. DEFERASIROX. [Interacting]
     Active Substance: DEFERASIROX
     Dosage: 1080 MG, UNK
     Route: 048
  2. DEFERASIROX. [Interacting]
     Active Substance: DEFERASIROX
     Dosage: 1080 MG, UNK
     Route: 048
  3. CYCLOSPORINE. [Suspect]
     Active Substance: CYCLOSPORINE
     Indication: PRODUCT USED FOR UNKNOWN INDICATION
     Dosage: UNK
     Route: 065
  4. DEFERASIROX. [Interacting]
     Active Substance: DEFERASIROX
     Indication: MYELODYSPLASTIC SYNDROME
     Dosage: 1080 MG, QD
     Route: 048

REACTIONS (5)
  - Blood creatinine increased [Unknown]
  - Drug interaction [Unknown]
  - Red blood cell abnormality [Unknown]
  - Type 1 diabetes mellitus [Unknown]
  - Immune system disorder [Unknown]
